FAERS Safety Report 16805551 (Version 1)
Quarter: 2019Q4

REPORT INFORMATION
  Report Type: Spontaneous
  Country: US (occurrence: US)
  Receive Date: 20190913
  Receipt Date: 20190913
  Transmission Date: 20200122
  Serious: Yes (Disabling)
  Sender: FDA-Public Use
  Company Number: None

PATIENT
  Age: 54 Year
  Sex: Male
  Weight: 108 kg

DRUGS (5)
  1. PROLIXIN [Suspect]
     Active Substance: FLUPHENAZINE HYDROCHLORIDE
     Indication: SCHIZOAFFECTIVE DISORDER
     Dosage: ?          QUANTITY:1 TABLET(S);?
     Route: 048
     Dates: start: 20180523, end: 20190703
  2. QUETIAPINE FUMARATE. [Suspect]
     Active Substance: QUETIAPINE FUMARATE
     Indication: SCHIZOAFFECTIVE DISORDER
     Dosage: ?          QUANTITY:1 TABLET(S);?
     Route: 048
     Dates: start: 20180523, end: 20190703
  3. ARIPIPRAZOLE 5MG [Concomitant]
     Active Substance: ARIPIPRAZOLE
  4. TRIHEXYPHENIDY HCL 2MG [Concomitant]
  5. PAROXETINE 20MG [Concomitant]
     Active Substance: PAROXETINE

REACTIONS (4)
  - Blood triglycerides increased [None]
  - Very low density lipoprotein increased [None]
  - Hypertension [None]
  - Blood glucose increased [None]

NARRATIVE: CASE EVENT DATE: 20190623
